FAERS Safety Report 22710070 (Version 2)
Quarter: 2023Q4

REPORT INFORMATION
  Report Type: Spontaneous
  Country: US (occurrence: US)
  Receive Date: 20230717
  Receipt Date: 20231011
  Transmission Date: 20240110
  Serious: No
  Sender: FDA-Public Use
  Company Number: US-ViiV Healthcare Limited-98173

PATIENT
  Age: 39 Year
  Sex: Female

DRUGS (3)
  1. CABENUVA [Suspect]
     Active Substance: CABOTEGRAVIR\RILPIVIRINE
     Indication: Product used for unknown indication
     Dosage: UNK, 600/900
     Dates: start: 20230705
  2. CABENUVA [Suspect]
     Active Substance: CABOTEGRAVIR\RILPIVIRINE
  3. CABENUVA [Suspect]
     Active Substance: CABOTEGRAVIR\RILPIVIRINE

REACTIONS (4)
  - Wrong technique in device usage process [Unknown]
  - Incorrect dose administered [Unknown]
  - Product use complaint [Unknown]
  - Product complaint [Unknown]

NARRATIVE: CASE EVENT DATE: 20230705
